FAERS Safety Report 20537892 (Version 1)
Quarter: 2022Q1

REPORT INFORMATION
  Report Type: Spontaneous
  Country: US (occurrence: None)
  Receive Date: 20220301
  Receipt Date: 20220301
  Transmission Date: 20220423
  Serious: No
  Sender: FDA-Public Use
  Company Number: None

PATIENT
  Age: 61 Year
  Sex: Female
  Weight: 119.75 kg

DRUGS (13)
  1. IBRANCE [Suspect]
     Active Substance: PALBOCICLIB
  2. ALEVE [Concomitant]
  3. ASPIRIN [Concomitant]
     Active Substance: ASPIRIN
  4. ATORVASTATIN [Concomitant]
     Active Substance: ATORVASTATIN
  5. GABAPENTIN [Concomitant]
     Active Substance: GABAPENTIN
  6. HYDROXYZINE [Concomitant]
     Active Substance: HYDROXYZINE HYDROCHLORIDE
  7. LANTUS [Concomitant]
     Active Substance: INSULIN GLARGINE
  8. LETROZOLE [Concomitant]
     Active Substance: LETROZOLE
  9. METFORMIN [Concomitant]
     Active Substance: METFORMIN HYDROCHLORIDE
  10. NEPROZEN [Concomitant]
  11. VENLAFAXINE [Concomitant]
     Active Substance: VENLAFAXINE HYDROCHLORIDE
  12. VITAMIN D3 [Concomitant]
     Active Substance: CHOLECALCIFEROL
  13. OZEMPIC [Concomitant]
     Active Substance: SEMAGLUTIDE

REACTIONS (1)
  - Drug ineffective [None]

NARRATIVE: CASE EVENT DATE: 20220301
